FAERS Safety Report 12928702 (Version 1)
Quarter: 2016Q4

REPORT INFORMATION
  Report Type: Spontaneous
  Country: US (occurrence: US)
  Receive Date: 20161110
  Receipt Date: 20161110
  Transmission Date: 20170207
  Serious: No
  Sender: FDA-Public Use
  Company Number: US-ASTRAZENECA-2016SF12246

PATIENT
  Age: 59 Year
  Sex: Female
  Weight: 68 kg

DRUGS (5)
  1. SYMBICORT [Suspect]
     Active Substance: BUDESONIDE\FORMOTEROL FUMARATE DIHYDRATE
     Indication: UPPER RESPIRATORY TRACT INFECTION
     Dosage: 160/4.5 MCG 60 INHALATIONS, ONE PUFF TWO TIMES A DAY
     Route: 055
     Dates: start: 20160929
  2. SYMBICORT [Suspect]
     Active Substance: BUDESONIDE\FORMOTEROL FUMARATE DIHYDRATE
     Indication: ASTHMA
     Dosage: 160/4.5 MCG 60 INHALATIONS, ONE PUFF TWO TIMES A DAY
     Route: 055
     Dates: start: 20160929
  3. SYMBICORT [Suspect]
     Active Substance: BUDESONIDE\FORMOTEROL FUMARATE DIHYDRATE
     Indication: UPPER RESPIRATORY TRACT INFECTION
     Dosage: 160/4.5 MCG 60 INHALATION,  ONE PUFF ONCE A DAY
     Route: 055
  4. SYMBICORT [Suspect]
     Active Substance: BUDESONIDE\FORMOTEROL FUMARATE DIHYDRATE
     Indication: ASTHMA
     Dosage: 160/4.5 MCG 60 INHALATION,  ONE PUFF ONCE A DAY
     Route: 055
  5. CALCIUM WITH D [Concomitant]
     Active Substance: CALCIUM\VITAMIN D
     Indication: OSTEOPENIA
     Dosage: TWO TABLETS DAILY FOR YEARS
     Route: 048
     Dates: start: 2008

REACTIONS (7)
  - Dysphonia [Unknown]
  - Drug administration error [Unknown]
  - Intentional product misuse [Unknown]
  - Nasal discomfort [Unknown]
  - Epistaxis [Unknown]
  - Off label use [Unknown]
  - Haemoptysis [Unknown]

NARRATIVE: CASE EVENT DATE: 20160929
